FAERS Safety Report 4444516-0 (Version None)
Quarter: 2004Q3

REPORT INFORMATION
  Report Type: 
  Country: None (occurrence: None)
  Receive Date: 20040902
  Receipt Date: 20040824
  Transmission Date: 20050211
  Serious: Yes (Death)
  Sender: FDA-Public Use
  Company Number: 163-20785-04070247

PATIENT
  Age: 52 Year
  Sex: Female

DRUGS (1)
  1. THALOMID [Suspect]
     Indication: MALIGNANT MELANOMA
     Dosage: 100 MG, ORAL
     Route: 048
     Dates: start: 20030811, end: 20040301

REACTIONS (1)
  - DISSEMINATED INTRAVASCULAR COAGULATION [None]
